FAERS Safety Report 4384335-7 (Version None)
Quarter: 2004Q2

REPORT INFORMATION
  Report Type: 
  Country: None (occurrence: None)
  Receive Date: 20040618
  Receipt Date: 20040608
  Transmission Date: 20050107
  Serious: Yes (Hospitalization)
  Sender: FDA-Public Use
  Company Number: WAES 0406USA00691

PATIENT
  Age: 46 Year
  Sex: Female

DRUGS (4)
  1. DECADRON [Suspect]
     Dosage: 40 MG/PO
     Route: 048
     Dates: start: 20030630
  2. NEULASTA [Suspect]
     Indication: CHEMOTHERAPY
  3. EPOGEN [Concomitant]
  4. ZOLPIDEM TARTRATE [Concomitant]

REACTIONS (10)
  - ALANINE AMINOTRANSFERASE INCREASED [None]
  - ARTHRALGIA [None]
  - ASPARTATE AMINOTRANSFERASE INCREASED [None]
  - BONE PAIN [None]
  - DEHYDRATION [None]
  - GASTROENTERITIS [None]
  - HEADACHE [None]
  - LEUKOCYTOSIS [None]
  - MIGRAINE [None]
  - MYALGIA [None]
